FAERS Safety Report 7812546-4 (Version None)
Quarter: 2011Q4

REPORT INFORMATION
  Report Type: 
  Country: None (occurrence: None)
  Receive Date: 20111011
  Receipt Date: 20111004
  Transmission Date: 20120403
  Serious: Yes (Hospitalization)
  Sender: FDA-Public Use
  Company Number: WAES 0807USA03410

PATIENT
  Age: 67 Year
  Sex: Male

DRUGS (9)
  1. ZOCOR [Suspect]
     Indication: ACUTE CORONARY SYNDROME
     Dosage: 40 MG/DAILY
     Route: 048
     Dates: start: 20110107
  2. PLACEBO [Suspect]
     Indication: ACUTE CORONARY SYNDROME
     Route: 048
     Dates: start: 20110107
  3. SEROQUEL [Concomitant]
  4. BISOPROLOL [Concomitant]
  5. LEVOTHYROXINE SODIUM [Concomitant]
  6. RISPERIDONE [Concomitant]
  7. RAMIPRIL [Concomitant]
  8. PLAVIX [Concomitant]
  9. ASPIRIN [Concomitant]

REACTIONS (11)
  - INSOMNIA [None]
  - IRRITABILITY [None]
  - AGITATION [None]
  - FALL [None]
  - ABDOMINAL PAIN [None]
  - RESTLESSNESS [None]
  - PSYCHOTIC DISORDER [None]
  - SCREAMING [None]
  - DEPRESSED MOOD [None]
  - PERSONALITY CHANGE [None]
  - AGGRESSION [None]
